FAERS Safety Report 23065290 (Version 1)
Quarter: 2023Q4

REPORT INFORMATION
  Report Type: Report from Study
  Country: CO (occurrence: CO)
  Receive Date: 20231013
  Receipt Date: 20231013
  Transmission Date: 20240110
  Serious: Yes (Hospitalization, Other)
  Sender: FDA-Public Use
  Company Number: CO-ABBVIE-5416208

PATIENT
  Sex: Male

DRUGS (1)
  1. ZEMPLAR [Suspect]
     Active Substance: PARICALCITOL
     Indication: Hyperparathyroidism secondary
     Dosage: FORM STRENGTH: 1 MICROGRAM
     Route: 048
     Dates: start: 20170630, end: 20230825

REACTIONS (6)
  - Arrhythmia [Recovering/Resolving]
  - Device related infection [Recovering/Resolving]
  - Vascular device infection [Recovering/Resolving]
  - Cardio-respiratory arrest [Recovering/Resolving]
  - Bacterial infection [Recovering/Resolving]
  - Cardiac disorder [Recovering/Resolving]
